FAERS Safety Report 5315190-6 (Version None)
Quarter: 2007Q2

REPORT INFORMATION
  Report Type: 
  Country: None (occurrence: None)
  Receive Date: 20070427
  Receipt Date: 20070413
  Transmission Date: 20071010
  Serious: Yes (Other)
  Sender: FDA-Public Use
  Company Number: 2007RR-06592

PATIENT
  Age: 54 Year
  Sex: Male

DRUGS (2)
  1. FUROSEMIDE [Suspect]
     Dosage: 40 MG, ORAL
     Route: 048
  2. ASPIRIN [Concomitant]

REACTIONS (5)
  - BLADDER DISCOMFORT [None]
  - CARDIAC FAILURE ACUTE [None]
  - DISEASE PROGRESSION [None]
  - DRUG DOSE OMISSION [None]
  - INAPPROPRIATE SCHEDULE OF DRUG ADMINISTRATION [None]
